FAERS Safety Report 23584809 (Version 1)
Quarter: 2024Q1

REPORT INFORMATION
  Report Type: Spontaneous
  Country: GB (occurrence: GB)
  Receive Date: 20240301
  Receipt Date: 20240301
  Transmission Date: 20240409
  Serious: Yes (Disabling, Congenital Anomaly, Other)
  Sender: FDA-Public Use
  Company Number: GB-ABBVIE-5645430

PATIENT
  Age: 1 Hour
  Sex: Female

DRUGS (1)
  1. DEPAKOTE [Suspect]
     Active Substance: DIVALPROEX SODIUM
     Indication: Maternal exposure timing unspecified
     Route: 064

REACTIONS (19)
  - Foetal anticonvulsant syndrome [Not Recovered/Not Resolved]
  - Medication error [Unknown]
  - Foetal exposure during pregnancy [Unknown]
  - Muscle disorder [Unknown]
  - Gastrooesophageal reflux disease [Unknown]
  - Incontinence [Unknown]
  - Urinary tract infection [Unknown]
  - Ear disorder [Unknown]
  - Pharyngeal disorder [Unknown]
  - Sleep disorder [Unknown]
  - Movement disorder [Unknown]
  - Dysmorphism [Unknown]
  - Sensory processing disorder [Unknown]
  - Developmental delay [Unknown]
  - Fine motor skill dysfunction [Unknown]
  - Autism spectrum disorder [Unknown]
  - Anxiety [Unknown]
  - Depression [Unknown]
  - Motor dysfunction [Unknown]

NARRATIVE: CASE EVENT DATE: 20060916
